FAERS Safety Report 8274061-6 (Version None)
Quarter: 2012Q2

REPORT INFORMATION
  Report Type: 
  Country: None (occurrence: None)
  Receive Date: 20120411
  Receipt Date: 20120404
  Transmission Date: 20120825
  Serious: Yes (Hospitalization)
  Sender: FDA-Public Use
  Company Number: US-GILEAD-2012-0053248

PATIENT
  Age: 67 Year
  Sex: Female

DRUGS (2)
  1. LETAIRIS [Suspect]
     Indication: PRODUCT USED FOR UNKNOWN INDICATION
     Dosage: 10 MG, UNK
     Route: 048
  2. TYVASO [Concomitant]

REACTIONS (8)
  - COUGH [None]
  - CHEST DISCOMFORT [None]
  - THROAT IRRITATION [None]
  - PROCEDURAL PAIN [None]
  - DECREASED APPETITE [None]
  - FATIGUE [None]
  - DYSGEUSIA [None]
  - LIMB TRAUMATIC AMPUTATION [None]
